FAERS Safety Report 7464366-0 (Version None)
Quarter: 2011Q2

REPORT INFORMATION
  Report Type: 
  Country: None (occurrence: None)
  Receive Date: 20110509
  Receipt Date: 20110428
  Transmission Date: 20111010
  Serious: Yes (Hospitalization)
  Sender: FDA-Public Use
  Company Number: NL-MEDIMMUNE-MEDI-0012386

PATIENT
  Sex: Male
  Weight: 5.05 kg

DRUGS (2)
  1. SYNAGIS [Suspect]
     Route: 030
     Dates: start: 20110131, end: 20110421
  2. SYNAGIS [Suspect]
     Route: 030
     Dates: start: 20101231, end: 20101231

REACTIONS (4)
  - GASTROINTESTINAL PAIN [None]
  - FEELING ABNORMAL [None]
  - ADVERSE EVENT [None]
  - GASTROINTESTINAL DISORDER [None]
